FAERS Safety Report 8793152 (Version 6)
Quarter: 2013Q1

REPORT INFORMATION
  Report Type: Spontaneous
  Country: US (occurrence: US)
  Receive Date: 20120918
  Receipt Date: 20130327
  Transmission Date: 20140127
  Serious: No
  Sender: FDA-Public Use
  Company Number: US-009507513-1209USA003509

PATIENT
  Age: 82 Year
  Sex: Male

DRUGS (9)
  1. COSOPT [Suspect]
     Dosage: UNK
     Route: 047
     Dates: start: 20120906
  2. ZIOPTAN [Suspect]
     Indication: GLAUCOMA
     Dosage: 1 DROP IN EACH EYE, QD
     Route: 047
     Dates: start: 20120905, end: 20121207
  3. RESTASIS [Concomitant]
  4. RAPAFLO [Concomitant]
  5. ACCUPRO [Concomitant]
  6. PLAVIX [Concomitant]
  7. LIPITOR [Concomitant]
  8. SPIRONOLACTONE [Concomitant]
  9. PROCARDIA [Concomitant]

REACTIONS (2)
  - Eye irritation [Not Recovered/Not Resolved]
  - Accidental exposure to product [Unknown]
